FAERS Safety Report 20720458 (Version 1)
Quarter: 2022Q2

REPORT INFORMATION
  Report Type: Spontaneous
  Country: US (occurrence: US)
  Receive Date: 20220418
  Receipt Date: 20220418
  Transmission Date: 20220721
  Serious: No
  Sender: FDA-Public Use
  Company Number: US-SEBELA IRELAND LIMITED-2021SEB00116

PATIENT
  Sex: Female

DRUGS (17)
  1. IMURAN [Suspect]
     Active Substance: AZATHIOPRINE
  2. AZATHIOPRINE [Concomitant]
     Active Substance: AZATHIOPRINE
  3. LOVENOX [Concomitant]
     Active Substance: ENOXAPARIN SODIUM
  4. VERAPAMIL [Concomitant]
     Active Substance: VERAPAMIL HYDROCHLORIDE
  5. NIMODIPINE [Concomitant]
     Active Substance: NIMODIPINE
  6. PHENAZOPYRIDINE HCL [Concomitant]
     Active Substance: PHENAZOPYRIDINE HYDROCHLORIDE
  7. SULFAMETHOXAZOLE [Concomitant]
     Active Substance: SULFAMETHOXAZOLE
  8. TRIMETHOPRIM [Concomitant]
     Active Substance: TRIMETHOPRIM
  9. PANTOPRAZOLE SODIUM [Concomitant]
     Active Substance: PANTOPRAZOLE SODIUM
  10. AMITRIPTYLINE [Concomitant]
     Active Substance: AMITRIPTYLINE
  11. VALPROIC ACID [Concomitant]
     Active Substance: VALPROIC ACID
  12. HYDROXYCHLOROQUINE SULFATE [Concomitant]
     Active Substance: HYDROXYCHLOROQUINE SULFATE
  13. EPINEPHRINE [Concomitant]
     Active Substance: EPINEPHRINE
  14. VITAMIN D [Concomitant]
     Active Substance: VITAMIN D NOS
  15. GAMUNEX-C [Concomitant]
     Active Substance: HUMAN IMMUNOGLOBULIN G
  16. BUDESONIDE [Concomitant]
     Active Substance: BUDESONIDE
  17. AZASAN [Concomitant]
     Active Substance: AZATHIOPRINE

REACTIONS (1)
  - Drug ineffective [Unknown]
